FAERS Safety Report 4376877-5 (Version None)
Quarter: 2004Q2

REPORT INFORMATION
  Report Type: 
  Country: None (occurrence: None)
  Receive Date: 20040608
  Receipt Date: 20030602
  Transmission Date: 20050107
  Serious: Yes (Other)
  Sender: FDA-Public Use
  Company Number: 200311871BCC

PATIENT
  Age: 69 Year
  Sex: Female
  Weight: 88.905 kg

DRUGS (7)
  1. ALEVE [Suspect]
     Indication: BACK PAIN
     Dosage: SEE IMAGE
     Route: 048
     Dates: start: 20030530, end: 20030602
  2. ALEVE [Suspect]
     Indication: BACK PAIN
     Dosage: SEE IMAGE
     Route: 048
     Dates: start: 20030529
  3. HUMULIN [Concomitant]
  4. NEXIUM [Concomitant]
  5. HYZAAR [Concomitant]
  6. NEURONTIN [Concomitant]
  7. PROPACET 100 [Concomitant]

REACTIONS (1)
  - HAEMATOCHEZIA [None]
